FAERS Safety Report 5802592-4 (Version None)
Quarter: 2008Q3

REPORT INFORMATION
  Report Type: 
  Country: None (occurrence: None)
  Receive Date: 20080708
  Receipt Date: 20080624
  Transmission Date: 20090109
  Serious: Yes (Hospitalization)
  Sender: FDA-Public Use
  Company Number: ES-ELI_LILLY_AND_COMPANY-ES200806005819

PATIENT
  Age: 71 Year
  Sex: Female

DRUGS (3)
  1. FORTEO [Suspect]
     Indication: OSTEOPOROSIS
     Dosage: 20 UG, UNKNOWN
     Route: 058
     Dates: start: 20080301, end: 20080610
  2. ALDACTONE [Concomitant]
     Dosage: UNK, UNKNOWN
     Route: 065
  3. IDEOS [Concomitant]
     Indication: OSTEOPOROSIS

REACTIONS (2)
  - ABDOMINAL PAIN [None]
  - RENAL COLIC [None]
